FAERS Safety Report 21392741 (Version 2)
Quarter: 2022Q4

REPORT INFORMATION
  Report Type: Spontaneous
  Country: US (occurrence: US)
  Receive Date: 20220929
  Receipt Date: 20221128
  Transmission Date: 20230112
  Serious: No
  Sender: FDA-Public Use
  Company Number: US-SA-SAC20220926000421

PATIENT
  Age: 10 Year
  Sex: Male

DRUGS (2)
  1. ELOCTATE [Suspect]
     Active Substance: EFMOROCTOCOG ALFA
     Dosage: 2795 UNITS ( +/- 10 % )
     Route: 065
  2. ELOCTATE [Suspect]
     Active Substance: EFMOROCTOCOG ALFA
     Dosage: 2795 UNITS ( +/- 10 % )
     Route: 065

REACTIONS (5)
  - Asthma [Unknown]
  - Wheezing [Unknown]
  - Tachypnoea [Unknown]
  - Feeling abnormal [Unknown]
  - Tachycardia [Unknown]

NARRATIVE: CASE EVENT DATE: 20220918
